FAERS Safety Report 14207555 (Version 1)
Quarter: 2017Q4

REPORT INFORMATION
  Report Type: Spontaneous
  Country: US (occurrence: None)
  Receive Date: 20171120
  Receipt Date: 20171120
  Transmission Date: 20180321
  Serious: No
  Sender: FDA-Public Use
  Company Number: None

PATIENT
  Age: 59 Year
  Sex: Female

DRUGS (1)
  1. CERDELGA [Suspect]
     Active Substance: ELIGLUSTAT
     Indication: GAUCHER^S DISEASE
     Route: 048
     Dates: start: 20170427, end: 20171101

REACTIONS (3)
  - Gastrointestinal disorder [None]
  - Bone pain [None]
  - Neuropathy peripheral [None]

NARRATIVE: CASE EVENT DATE: 20171101
